FAERS Safety Report 17923833 (Version 1)
Quarter: 2020Q2

REPORT INFORMATION
  Report Type: Spontaneous
  Country: ES (occurrence: ES)
  Receive Date: 20200622
  Receipt Date: 20200622
  Transmission Date: 20200714
  Serious: Yes (Hospitalization)
  Sender: FDA-Public Use
  Company Number: ES-TASMAN PHARMA, INC.-2020TSM00248

PATIENT
  Age: 46 Year
  Sex: Male

DRUGS (4)
  1. CLOZAPINE. [Suspect]
     Active Substance: CLOZAPINE
     Dosage: UNK
     Route: 065
  2. BENZODIAZEPINES [Concomitant]
     Active Substance: BENZODIAZEPINE
     Route: 065
  3. CLOZAPINE. [Suspect]
     Active Substance: CLOZAPINE
     Indication: SCHIZOPHRENIA
     Dosage: 600 MG, 1X/DAY
     Route: 065
  4. CLOZAPINE. [Suspect]
     Active Substance: CLOZAPINE
     Dosage: 200 MG, 1X/DAY
     Route: 065

REACTIONS (3)
  - Febrile neutropenia [Recovered/Resolved]
  - Agranulocytosis [Recovered/Resolved]
  - Wound infection bacterial [Recovered/Resolved]
